FAERS Safety Report 6347029-4 (Version None)
Quarter: 2009Q3

REPORT INFORMATION
  Report Type: 
  Country: None (occurrence: None)
  Receive Date: 20090909
  Receipt Date: 20090909
  Transmission Date: 20100115
  Serious: Yes (Other)
  Sender: FDA-Public Use
  Company Number: None

PATIENT
  Age: 34 Year
  Sex: Female
  Weight: 56.246 kg

DRUGS (1)
  1. ZYRTEC [Suspect]
     Dates: start: 20090801, end: 20090828

REACTIONS (3)
  - HAEMORRHAGE [None]
  - PRURITUS [None]
  - SCRATCH [None]
